FAERS Safety Report 9921575 (Version 1)
Quarter: 2014Q1

REPORT INFORMATION
  Report Type: Spontaneous
  Country: US (occurrence: None)
  Receive Date: 20140221
  Receipt Date: 20140221
  Transmission Date: 20141002
  Serious: No
  Sender: FDA-Public Use
  Company Number: None

PATIENT
  Sex: 0

DRUGS (1)
  1. METFORMIN [Suspect]

REACTIONS (5)
  - Nausea [None]
  - Vision blurred [None]
  - Flatulence [None]
  - Dyspepsia [None]
  - Diarrhoea [None]
